FAERS Safety Report 9130085 (Version 2)
Quarter: 2013Q2

REPORT INFORMATION
  Report Type: Spontaneous
  Country: US (occurrence: US)
  Receive Date: 20130228
  Receipt Date: 20130429
  Transmission Date: 20140414
  Serious: Yes (Other)
  Sender: FDA-Public Use
  Company Number: PHHY2013US019354

PATIENT
  Age: 84 Year
  Sex: Female

DRUGS (2)
  1. ASCRIPTIN BUFFERED REG STRENGTH TABLETS [Suspect]
     Indication: ARTHRITIS
     Dosage: 2 DF (ONE TO TWO TABLETS A DAY)
     Route: 048
  2. ASCRIPTIN BUFFERED REG STRENGTH TABLETS [Suspect]
     Indication: PAIN

REACTIONS (2)
  - Fall [Recovered/Resolved]
  - Incorrect drug administration duration [Unknown]
